FAERS Safety Report 4333434-4 (Version None)
Quarter: 2004Q2

REPORT INFORMATION
  Report Type: 
  Country: None (occurrence: None)
  Receive Date: 20040401
  Receipt Date: 20040316
  Transmission Date: 20050107
  Serious: Yes (Hospitalization)
  Sender: FDA-Public Use
  Company Number: 190762

PATIENT
  Age: 45 Year
  Sex: Female
  Weight: 108.8633 kg

DRUGS (7)
  1. AVONEX [Suspect]
     Indication: MULTIPLE SCLEROSIS
     Dosage: 30 MCG QW IM
     Route: 030
     Dates: start: 19980101, end: 20030301
  2. AVONEX [Suspect]
     Indication: MULTIPLE SCLEROSIS
     Dosage: 30 MCG QW IM
     Route: 030
     Dates: start: 20040201
  3. DOXEPIN HCL [Concomitant]
  4. HORMONE REPLACEMENT THERAPY (NOS) [Concomitant]
  5. METHOTREXATE [Concomitant]
  6. SKELAXIN [Concomitant]
  7. HYDROCHLOROTHIAZIDE [Concomitant]

REACTIONS (6)
  - ASEPTIC NECROSIS BONE [None]
  - ASTHMA [None]
  - CONDITION AGGRAVATED [None]
  - FIBROMYALGIA [None]
  - MULTIPLE SCLEROSIS [None]
  - OSTEOARTHRITIS [None]
